FAERS Safety Report 4736595-8 (Version None)
Quarter: 2005Q3

REPORT INFORMATION
  Report Type: 
  Country: None (occurrence: None)
  Receive Date: 20050802
  Receipt Date: 20050721
  Transmission Date: 20060218
  Serious: Yes (Life-Threatening, Hospitalization)
  Sender: FDA-Public Use
  Company Number: 2005011043

PATIENT
  Age: 10 Year
  Sex: Female
  Weight: 27 kg

DRUGS (3)
  1. SILDEANFIL (SILDENAFIL) [Suspect]
     Indication: PULMONARY HYPERTENSION
     Dosage: 120 MG (40 MG, 3 IN 1 D), ORAL
     Route: 048
     Dates: start: 20040226, end: 20050322
  2. NIFEDIPINE [Concomitant]
  3. ADVAIR DISKUS(FLUTICASONE PROPIONATE) [Concomitant]

REACTIONS (7)
  - CHEST X-RAY ABNORMAL [None]
  - COUGH [None]
  - EXERCISE TOLERANCE DECREASED [None]
  - HYPOXIA [None]
  - LUNG CONSOLIDATION [None]
  - LUNG DISORDER [None]
  - PLEURAL EFFUSION [None]
